FAERS Safety Report 22881906 (Version 2)
Quarter: 2023Q4

REPORT INFORMATION
  Report Type: Spontaneous
  Country: US (occurrence: US)
  Receive Date: 20230830
  Receipt Date: 20231110
  Transmission Date: 20240109
  Serious: Yes (Hospitalization)
  Sender: FDA-Public Use
  Company Number: US-PADAGIS-2023PAD01256

PATIENT

DRUGS (2)
  1. TESTOSTERONE [Suspect]
     Active Substance: TESTOSTERONE
     Indication: Hypogonadism
     Dosage: UNK, (INJECTABLE TESTOSTERONE THERAPY)
     Route: 065
  2. TESTOSTERONE [Suspect]
     Active Substance: TESTOSTERONE
     Dosage: UNK, QD (APPLY TWO PACKETS TO THE SHOULDER)
     Route: 061

REACTIONS (2)
  - Mesenteric vein thrombosis [Unknown]
  - Portal vein thrombosis [Unknown]
